FAERS Safety Report 18259550 (Version 1)
Quarter: 2020Q3

REPORT INFORMATION
  Report Type: Report from Study
  Country: None (occurrence: AR)
  Receive Date: 20200912
  Receipt Date: 20200912
  Transmission Date: 20201103
  Serious: Yes (Other)
  Sender: FDA-Public Use
  Company Number: AR-ABBVIE-20K-007-3515887-00

PATIENT
  Age: 54 Year
  Sex: Female

DRUGS (1)
  1. HUMIRA [Suspect]
     Active Substance: ADALIMUMAB
     Indication: RHEUMATOID ARTHRITIS
     Route: 058
     Dates: start: 20170517

REACTIONS (7)
  - Gait disturbance [Unknown]
  - Cyst [Not Recovered/Not Resolved]
  - Hepatic rupture [Unknown]
  - Hepatitis C [Not Recovered/Not Resolved]
  - Condition aggravated [Recovering/Resolving]
  - Neoplasm [Not Recovered/Not Resolved]
  - Pain [Unknown]

NARRATIVE: CASE EVENT DATE: 2019
